FAERS Safety Report 20891399 (Version 2)
Quarter: 2022Q2

REPORT INFORMATION
  Report Type: Spontaneous
  Country: IE (occurrence: None)
  Receive Date: 20220530
  Receipt Date: 20220603
  Transmission Date: 20220721
  Serious: Yes (Other)
  Sender: FDA-Public Use
  Company Number: IE-ROCHE-3101511

PATIENT
  Sex: Male
  Weight: 100.5 kg

DRUGS (10)
  1. RITUXIMAB [Suspect]
     Active Substance: RITUXIMAB
     Indication: Follicular lymphoma
     Dosage: LAST DOSE DATE: 20/FEB/2022
     Route: 065
     Dates: start: 20220104, end: 20220220
  2. OBINUTUZUMAB [Suspect]
     Active Substance: OBINUTUZUMAB
     Indication: Follicular lymphoma
     Dosage: LAST DOSE DATE: 05/NOV/2021
     Route: 065
     Dates: start: 20210414, end: 20211105
  3. CYCLOPHOSPHAMIDE [Suspect]
     Active Substance: CYCLOPHOSPHAMIDE
     Indication: Follicular lymphoma
     Dosage: LAST DOSE DATE: 05/NOV/2021
     Route: 065
     Dates: start: 20210414, end: 20211105
  4. DOXORUBICIN [Suspect]
     Active Substance: DOXORUBICIN
     Indication: Follicular lymphoma
     Dosage: LAST DOSE DATE: 05/NOV/2021
     Route: 065
     Dates: start: 20210414, end: 20211105
  5. VINCRISTINE [Suspect]
     Active Substance: VINCRISTINE
     Indication: Follicular lymphoma
     Dosage: LAST DOSE DATE: 05/NOV/2021
     Route: 065
     Dates: start: 20210414, end: 20211105
  6. PREDNISONE [Suspect]
     Active Substance: PREDNISONE
     Indication: Follicular lymphoma
     Dosage: LAST DOSE DATE: 05/NOV/2021
     Route: 065
     Dates: start: 20210414, end: 20211105
  7. IFOSFAMIDE [Suspect]
     Active Substance: IFOSFAMIDE
     Indication: Follicular lymphoma
     Dosage: LAST DOSE DATE: 20/FEB/2022
     Route: 065
     Dates: start: 20220104, end: 20220220
  8. CARBOPLATIN [Suspect]
     Active Substance: CARBOPLATIN
     Indication: Follicular lymphoma
     Dosage: LAST DOSE DATE: 20/FEB/2022
     Route: 065
     Dates: start: 20220104, end: 20220220
  9. ETOPOSIDE [Suspect]
     Active Substance: ETOPOSIDE
     Indication: Follicular lymphoma
     Dosage: LAST DOSE DATE: 20/FEB/2022
     Route: 065
     Dates: start: 20220104, end: 20220220
  10. IDELALISIB [Suspect]
     Active Substance: IDELALISIB
     Indication: Follicular lymphoma
     Dosage: LAST DOSE DATE: 17/MAY/2022
     Route: 065
     Dates: start: 20220225, end: 20220517

REACTIONS (3)
  - Disease progression [Unknown]
  - Blood lactate dehydrogenase increased [Unknown]
  - Treatment failure [Unknown]
